FAERS Safety Report 15616950 (Version 1)
Quarter: 2018Q4

REPORT INFORMATION
  Report Type: Spontaneous
  Country: FR (occurrence: FR)
  Receive Date: 20181114
  Receipt Date: 20181114
  Transmission Date: 20190205
  Serious: Yes (Hospitalization)
  Sender: FDA-Public Use
  Company Number: FR-PFIZER INC-2018459952

PATIENT
  Age: 84 Year
  Sex: Female

DRUGS (6)
  1. KARDEGIC [Concomitant]
     Active Substance: ASPIRIN DL-LYSINE
  2. CORDARONE [Concomitant]
     Active Substance: AMIODARONE HYDROCHLORIDE
  3. FOSAVANCE [Concomitant]
     Active Substance: ALENDRONATE SODIUM\CHOLECALCIFEROL
  4. AMLODIPINE [Suspect]
     Active Substance: AMLODIPINE BESYLATE
     Indication: HYPERTENSION
     Dosage: 5 MG, 1X/DAY
     Route: 048
     Dates: end: 20181006
  5. FLECAINE [Concomitant]
     Active Substance: FLECAINIDE
  6. MIRTAZAPINE. [Suspect]
     Active Substance: MIRTAZAPINE
     Indication: DEPRESSION
     Dosage: 15 MG, 1X/DAY
     Route: 048
     Dates: end: 20181006

REACTIONS (2)
  - Fall [Recovered/Resolved]
  - Hyponatraemia [Recovering/Resolving]

NARRATIVE: CASE EVENT DATE: 20181005
